FAERS Safety Report 7335154 (Version 3)
Quarter: 2013Q2

REPORT INFORMATION
  Report Type: Spontaneous
  Country: GB (occurrence: GB)
  Receive Date: 20100329
  Receipt Date: 20130430
  Transmission Date: 20140414
  Serious: Yes (Other)
  Sender: FDA-Public Use
  Company Number: PHHY2010GB17181

PATIENT
  Age: 57 Year
  Sex: Female

DRUGS (6)
  1. CLOZAPINE [Suspect]
     Dosage: 12.5 MG, AT NIGHT
     Dates: start: 200711
  2. CLOZAPINE [Suspect]
     Dosage: 12.5 MG, BID  (12.5 MG AT MORNING AND AT NIGHT)
  3. OLANZAPINE [Concomitant]
     Indication: PSYCHOTIC DISORDER
     Dosage: 10 MG, UNK
  4. LEVOMEPROMAZINE [Concomitant]
     Indication: PSYCHOTIC DISORDER
     Dosage: 75 MG, QHS
  5. VALPROATE SODIUM [Concomitant]
     Indication: PSYCHOTIC DISORDER
     Dosage: 1100 MG, QD
  6. HALOPERIDOL [Concomitant]
     Dosage: 5 MG, UNK
     Route: 030

REACTIONS (11)
  - Tubulointerstitial nephritis [Recovering/Resolving]
  - Malaise [Recovering/Resolving]
  - Pyrexia [Recovering/Resolving]
  - Blood creatinine increased [Unknown]
  - Red blood cells urine [Recovering/Resolving]
  - Protein urine [Recovering/Resolving]
  - C-reactive protein increased [Recovering/Resolving]
  - Pyuria [Recovering/Resolving]
  - Renal failure acute [Recovered/Resolved]
  - Tachycardia [Not Recovered/Not Resolved]
  - Lower respiratory tract infection [Unknown]
